FAERS Safety Report 6315126-5 (Version None)
Quarter: 2009Q3

REPORT INFORMATION
  Report Type: 
  Country: None (occurrence: None)
  Receive Date: 20090817
  Receipt Date: 20090805
  Transmission Date: 20100115
  Serious: Yes (Death)
  Sender: FDA-Public Use
  Company Number: GXKR2009CH08968

PATIENT
  Age: 62 Year
  Sex: Male

DRUGS (12)
  1. CO-EPRIL (NGX) (ENALAPRIL, HYDROCHLOROTHIAZIDE) [Suspect]
     Indication: ESSENTIAL HYPERTENSION
     Dosage: ORAL
     Route: 048
  2. AMLODIPINE BESYLATE [Suspect]
     Indication: ESSENTIAL HYPERTENSION
     Dosage: 10 MG/DAY, ORAL
     Route: 048
  3. ENOXAPARIN SODIUM [Concomitant]
  4. PRAVASTATIN [Concomitant]
  5. SINGULAIR [Concomitant]
  6. ACETAMINOPHEN [Concomitant]
  7. NEXIUM [Concomitant]
  8. PULMICORT [Concomitant]
  9. ATROVENT [Concomitant]
  10. TORADOL [Concomitant]
  11. LORAZEPAM [Concomitant]
  12. MORPHINE SULFATE INJ [Concomitant]

REACTIONS (6)
  - ABDOMINAL COMPARTMENT SYNDROME [None]
  - CONDITION AGGRAVATED [None]
  - HAEMODYNAMIC INSTABILITY [None]
  - HYPOTHERMIA [None]
  - MULTI-ORGAN FAILURE [None]
  - SHOCK [None]
